FAERS Safety Report 9649559 (Version 1)
Quarter: 2013Q4

REPORT INFORMATION
  Report Type: Spontaneous
  Country: US (occurrence: US)
  Receive Date: 20131028
  Receipt Date: 20131028
  Transmission Date: 20140711
  Serious: No
  Sender: FDA-Public Use
  Company Number: US-B.I. PHARMACEUTICALS,INC./RIDGEFIELD-2013-BI-32904BP

PATIENT
  Age: 72 Year
  Sex: Male
  Weight: 58 kg

DRUGS (8)
  1. SPIRIVA [Suspect]
     Indication: CHRONIC OBSTRUCTIVE PULMONARY DISEASE
     Dosage: 18 MCG
     Route: 055
     Dates: start: 20130915
  2. ZITHROMYCIN [Concomitant]
     Dosage: 500 MG
     Route: 048
     Dates: start: 20131008
  3. ROBINOL [Concomitant]
     Dosage: 2 MG
     Route: 048
     Dates: start: 20131008
  4. HYDROCHLOROTHIAZIDE [Concomitant]
     Dosage: 25 MG
     Route: 048
  5. AMLODIPINE [Concomitant]
     Dosage: 5 MG
     Route: 048
  6. NIASPAN ER [Concomitant]
     Dosage: 1000 MG
     Route: 048
  7. KLOR CON [Concomitant]
     Dosage: 20 MEQ
     Route: 048
  8. LOSARTAN [Concomitant]
     Dosage: 100 MG
     Route: 048

REACTIONS (2)
  - Heart rate increased [Not Recovered/Not Resolved]
  - Abnormal loss of weight [Unknown]
